FAERS Safety Report 7415569-2 (Version None)
Quarter: 2011Q2

REPORT INFORMATION
  Report Type: 
  Country: None (occurrence: None)
  Receive Date: 20110414
  Receipt Date: 20101206
  Transmission Date: 20111010
  Serious: Yes (Hospitalization, Other)
  Sender: FDA-Public Use
  Company Number: US-BAYER-201016854BCC

PATIENT
  Age: 64 Year
  Sex: Male
  Weight: 125 kg

DRUGS (2)
  1. AVAPRO [Concomitant]
     Route: 065
     Dates: start: 20100101
  2. ALEVE [Suspect]
     Indication: BACK PAIN
     Dosage: BOTTLE COUNT 100S
     Route: 048

REACTIONS (8)
  - ABASIA [None]
  - DYSPNOEA [None]
  - HYPERSENSITIVITY [None]
  - LOSS OF CONSCIOUSNESS [None]
  - DIZZINESS [None]
  - RASH GENERALISED [None]
  - SWELLING [None]
  - THROAT TIGHTNESS [None]
